FAERS Safety Report 9490157 (Version 1)
Quarter: 2013Q3

REPORT INFORMATION
  Report Type: Spontaneous
  Country: US (occurrence: US)
  Receive Date: 20130830
  Receipt Date: 20130830
  Transmission Date: 20140515
  Serious: Yes (Hospitalization, Other)
  Sender: FDA-Public Use
  Company Number: US-AMGEN-USASP2013060937

PATIENT
  Age: 66 Year
  Sex: Female
  Weight: 106.5 kg

DRUGS (1)
  1. PROCRIT [Suspect]
     Indication: MUCOSAL HAEMORRHAGE
     Dosage: UNK
     Route: 065
     Dates: start: 2011

REACTIONS (8)
  - Gastric haemorrhage [Not Recovered/Not Resolved]
  - Abasia [Not Recovered/Not Resolved]
  - Anaemia [Not Recovered/Not Resolved]
  - Drug ineffective [Not Recovered/Not Resolved]
  - Asthenia [Not Recovered/Not Resolved]
  - Fatigue [Not Recovered/Not Resolved]
  - Thrombosis in device [Not Recovered/Not Resolved]
  - Local swelling [Not Recovered/Not Resolved]
